FAERS Safety Report 11294322 (Version 1)
Quarter: 2015Q3

REPORT INFORMATION
  Report Type: Spontaneous
  Country: US (occurrence: US)
  Receive Date: 20150722
  Receipt Date: 20150722
  Transmission Date: 20151125
  Serious: No
  Sender: FDA-Public Use
  Company Number: US-ELI_LILLY_AND_COMPANY-US200805000698

PATIENT
  Sex: Female

DRUGS (3)
  1. EVISTA [Suspect]
     Active Substance: RALOXIFENE HYDROCHLORIDE
     Indication: OSTEOPENIA
     Dosage: 60 MG, DAILY (1/D)
     Dates: start: 2006
  2. CITRICAL [Concomitant]
     Active Substance: CALCIUM CITRATE
     Dosage: UNK, DAILY (1/D)
  3. EVISTA [Suspect]
     Active Substance: RALOXIFENE HYDROCHLORIDE
     Dosage: 60 MG, 3/W

REACTIONS (3)
  - Intervertebral disc protrusion [Recovering/Resolving]
  - Muscle spasms [Recovering/Resolving]
  - Hyperhidrosis [Recovering/Resolving]
